FAERS Safety Report 4818578-2 (Version None)
Quarter: 2005Q4

REPORT INFORMATION
  Report Type: 
  Country: None (occurrence: None)
  Receive Date: 20051031
  Receipt Date: 20051018
  Transmission Date: 20060501
  Serious: Yes (Death)
  Sender: FDA-Public Use
  Company Number: 02100-JPN-05-0487

PATIENT
  Age: 80 Year
  Sex: Male

DRUGS (16)
  1. CILOSTAZOL [Suspect]
     Indication: BRAIN STEM INFARCTION
     Dosage: 200 MG, ORAL
     Route: 048
     Dates: start: 20050306, end: 20050705
  2. FAROPENEM SODIUM [Concomitant]
     Route: 048
  3. HALOPERIDOL [Concomitant]
  4. NAFTOPIDIL [Concomitant]
  5. KALLIDINOGENASE [Concomitant]
  6. DIFENIDOL HYDROCHLRIDE [Concomitant]
  7. ADENOSINE TRI PHOSPHATE DISODIUM [Concomitant]
  8. LIMAPROST ALFADEX [Concomitant]
  9. FAMOTIDINE [Concomitant]
  10. IMIDAPRIL HYDROCHLORIDE [Concomitant]
  11. ETIZOLAM [Concomitant]
  12. FILGRASTIM [Concomitant]
  13. AMBROXOL HYDROCHLORIDE [Concomitant]
  14. BIAPENEM [Concomitant]
  15. VANCOMYCIN HYDROCHLORIDE [Concomitant]
  16. ARBEKACIN [Concomitant]

REACTIONS (7)
  - BONE MARROW FAILURE [None]
  - BRAIN STEM INFARCTION [None]
  - DISEASE RECURRENCE [None]
  - HYPOPROTEINAEMIA [None]
  - INFECTION [None]
  - PNEUMONIA ASPIRATION [None]
  - RESPIRATORY FAILURE [None]
